FAERS Safety Report 21927267 (Version 1)
Quarter: 2023Q1

REPORT INFORMATION
  Report Type: Spontaneous
  Country: US (occurrence: US)
  Receive Date: 20230130
  Receipt Date: 20230130
  Transmission Date: 20230417
  Serious: Yes (Other)
  Sender: FDA-Public Use
  Company Number: US-PFIZER INC-PV202300016632

PATIENT
  Age: 32 Year
  Sex: Female

DRUGS (2)
  1. XELJANZ XR [Interacting]
     Active Substance: TOFACITINIB CITRATE
     Indication: Colitis ulcerative
     Dosage: START OF TREATMENT 3 YEARS AGO, APPROXIMATELY 2020
     Route: 048
  2. STELARA [Interacting]
     Active Substance: USTEKINUMAB
     Dosage: START OF TREATMENT 3 YEARS AGO, APPROXIMATELY 2020

REACTIONS (1)
  - Drug interaction [Unknown]
